FAERS Safety Report 23049165 (Version 1)
Quarter: 2023Q4

REPORT INFORMATION
  Report Type: Spontaneous
  Country: CA (occurrence: CA)
  Receive Date: 20231010
  Receipt Date: 20231010
  Transmission Date: 20240110
  Serious: Yes (Death)
  Sender: FDA-Public Use
  Company Number: CA-CELLTRION INC.-2023CA019513

PATIENT

DRUGS (11)
  1. INFLECTRA [Suspect]
     Active Substance: INFLIXIMAB-DYYB
     Indication: Crohn^s disease
     Dosage: 400 MG, EVERY (Q) 0, 2, 6, THEN EVERY 8 WEEKS
     Route: 042
     Dates: start: 20230623
  2. INFLECTRA [Suspect]
     Active Substance: INFLIXIMAB-DYYB
     Dosage: 400 MG, EVERY (Q) 0, 2, 6, THEN EVERY 8 WEEKS
     Route: 042
     Dates: start: 20230808, end: 20230808
  3. PREDNISONE [Concomitant]
     Active Substance: PREDNISONE
     Dosage: UNK
  4. PANTOPRAZOLE [Concomitant]
     Active Substance: PANTOPRAZOLE
  5. ATORVASTATIN [Concomitant]
     Active Substance: ATORVASTATIN
  6. FOLIC ACID [Concomitant]
     Active Substance: FOLIC ACID
  7. ASPIRIN [Concomitant]
     Active Substance: ASPIRIN
  8. VITAMIN B12 [Concomitant]
     Active Substance: CYANOCOBALAMIN
  9. VIT D [VITAMIN D NOS] [Concomitant]
  10. CALCIUM [Concomitant]
     Active Substance: CALCIUM
  11. FERROUS SULFATE [Concomitant]
     Active Substance: FERROUS SULFATE

REACTIONS (1)
  - Death [Fatal]
